FAERS Safety Report 18245120 (Version 2)
Quarter: 2021Q1

REPORT INFORMATION
  Report Type: Report from Study
  Country: CA (occurrence: CA)
  Receive Date: 20200908
  Receipt Date: 20210329
  Transmission Date: 20210419
  Serious: Yes (Other)
  Sender: FDA-Public Use
  Company Number: CA-PFIZER INC-2020344144

PATIENT
  Age: 72 Year
  Sex: Female

DRUGS (5)
  1. CARBOPLATIN. [Suspect]
     Active Substance: CARBOPLATIN
     Dosage: FOR 2 CYCLES
     Route: 065
     Dates: start: 2019, end: 2019
  2. KEYTRUDA [Suspect]
     Active Substance: PEMBROLIZUMAB
     Dosage: 112 MG, EVERY THREE WEEKS
     Route: 042
     Dates: start: 20191226
  3. KEYTRUDA [Suspect]
     Active Substance: PEMBROLIZUMAB
     Indication: NON-SMALL CELL LUNG CANCER METASTATIC
     Dosage: 112 MG, EVERY THREE WEEKS
     Route: 042
     Dates: start: 20190417
  4. KEYTRUDA [Suspect]
     Active Substance: PEMBROLIZUMAB
     Dosage: UNK
  5. ALIMTA [Suspect]
     Active Substance: PEMETREXED DISODIUM
     Dosage: FOR 2 CYCLES
     Route: 065
     Dates: start: 2019

REACTIONS (11)
  - Hypercalcaemia [Unknown]
  - Nausea [Unknown]
  - Vomiting [Unknown]
  - Pneumonia [Unknown]
  - Anaemia [Unknown]
  - Hepatitis [Recovered/Resolved]
  - Haematotoxicity [Unknown]
  - Fatigue [Unknown]
  - Asthenia [Unknown]
  - Inappropriate schedule of product administration [Unknown]
  - Lipase increased [Unknown]

NARRATIVE: CASE EVENT DATE: 2019
